FAERS Safety Report 19447279 (Version 1)
Quarter: 2021Q2

REPORT INFORMATION
  Report Type: Spontaneous
  Country: US (occurrence: US)
  Receive Date: 20210621
  Receipt Date: 20210621
  Transmission Date: 20210717
  Serious: Yes (Other)
  Sender: FDA-Public Use
  Company Number: None

PATIENT
  Age: 62 Year
  Sex: Male
  Weight: 75.2 kg

DRUGS (22)
  1. CODEINE?GUAIFENESIN [Concomitant]
     Active Substance: CODEINE PHOSPHATE\GUAIFENESIN
     Dates: start: 20210619
  2. MELATONIN [Concomitant]
     Active Substance: MELATONIN
     Dates: start: 20210617
  3. METHYLPREDNISOLONE. [Concomitant]
     Active Substance: METHYLPREDNISOLONE
     Dates: start: 20210619
  4. ZINC. [Concomitant]
     Active Substance: ZINC
     Dates: start: 20210617
  5. ACETAMINOPHEN. [Concomitant]
     Active Substance: ACETAMINOPHEN
     Dates: start: 20210617
  6. CEFTRIAXONE. [Concomitant]
     Active Substance: CEFTRIAXONE
     Dates: start: 20210617
  7. DEXAMETHASONE. [Concomitant]
     Active Substance: DEXAMETHASONE
     Dates: start: 20210617
  8. TOCILIZUMAB. [Concomitant]
     Active Substance: TOCILIZUMAB
     Dates: start: 20210620, end: 20210620
  9. LOPERAMIDE [Concomitant]
     Active Substance: LOPERAMIDE
     Dates: start: 20210618
  10. ONDANSETRON [Concomitant]
     Active Substance: ONDANSETRON
     Dates: start: 20210617
  11. HYDROCODONE [Concomitant]
     Active Substance: HYDROCODONE
     Dates: start: 20210617
  12. ALBUTEROL. [Concomitant]
     Active Substance: ALBUTEROL
     Dates: start: 20210617
  13. ASCORBIC ACID. [Concomitant]
     Active Substance: ASCORBIC ACID
     Dates: start: 20210617
  14. ENOXAPARIN [Concomitant]
     Active Substance: ENOXAPARIN
     Dates: start: 20210617
  15. IVERMECTIN. [Concomitant]
     Active Substance: IVERMECTIN
     Dates: start: 20210617, end: 20210617
  16. MORPHINE [Concomitant]
     Active Substance: MORPHINE
     Dates: start: 20210617
  17. PANTOPRAZOLE [Concomitant]
     Active Substance: PANTOPRAZOLE
     Dates: start: 20210619
  18. REMDESIVIR. [Suspect]
     Active Substance: REMDESIVIR
     Indication: COVID-19
     Route: 042
     Dates: start: 20210617, end: 20210621
  19. AZITHROMYCIN ANHYDROUS. [Concomitant]
     Active Substance: AZITHROMYCIN ANHYDROUS
     Dates: start: 20210617
  20. CHOLECALCIFEROL [Concomitant]
     Active Substance: CHOLECALCIFEROL
     Dates: start: 20210617
  21. DOCUSATE?SENNA [Concomitant]
     Dates: start: 20210617
  22. GUAIFENESIN. [Concomitant]
     Active Substance: GUAIFENESIN
     Dates: start: 20210617

REACTIONS (1)
  - Bradycardia [None]

NARRATIVE: CASE EVENT DATE: 20210621
